FAERS Safety Report 5314237-0 (Version None)
Quarter: 2007Q2

REPORT INFORMATION
  Report Type: 
  Country: None (occurrence: None)
  Receive Date: 20070425
  Receipt Date: 20070413
  Transmission Date: 20071010
  Serious: Yes (Life-Threatening, Hospitalization, Other)
  Sender: FDA-Public Use
  Company Number: 2007US000300

PATIENT
  Age: 52 Year
  Sex: Female

DRUGS (22)
  1. PROGRAF [Suspect]
     Indication: PROPHYLAXIS AGAINST TRANSPLANT REJECTION
     Dosage: 0.5 MG, UNK, ORAL
     Route: 048
     Dates: start: 20060904
  2. MYCOPHENOLATE MOFETIL [Suspect]
     Indication: PROPHYLAXIS AGAINST TRANSPLANT REJECTION
     Dosage: 1000 MG, BID; ORAL
     Route: 048
     Dates: start: 20060904
  3. PREDNISONE TAB [Suspect]
     Indication: PROPHYLAXIS AGAINST TRANSPLANT REJECTION
     Dosage: 2.5 MG, UID/QD; ORAL
     Route: 048
     Dates: start: 20060904
  4. CYCLOSPORINE [Suspect]
     Indication: PROPHYLAXIS AGAINST TRANSPLANT REJECTION
     Dosage: 100 MG, UNK; ORAL, 100 MG, UNK, ORAL
     Route: 048
     Dates: start: 20070212
  5. CYCLOSPORINE [Suspect]
     Indication: PROPHYLAXIS AGAINST TRANSPLANT REJECTION
     Dosage: 100 MG, UNK; ORAL, 100 MG, UNK, ORAL
     Route: 048
     Dates: start: 20070221
  6. SEPTRA (SULFAMETHOXAZOLE, TRIMETHOPRIUM) [Concomitant]
  7. PREVACID [Concomitant]
  8. MVI (VITAMINS NOS) [Concomitant]
  9. LASIX [Concomitant]
  10. LEVAQUIN [Concomitant]
  11. COUMADIN [Concomitant]
  12. AMIODARONE HCL [Concomitant]
  13. COREG [Concomitant]
  14. HEPARIN [Concomitant]
  15. DIURIL (CHLOROTHIAZIDE) [Concomitant]
  16. HYDRALAZINE HCL [Concomitant]
  17. IMDUR [Concomitant]
  18. DOUBUTAMINE (DOBUTAMINE) [Concomitant]
  19. TORSEMIDE [Concomitant]
  20. METOPROLOL TARTRATE [Concomitant]
  21. LOVENOX [Concomitant]
  22. LIDOCAINE [Concomitant]

REACTIONS (13)
  - ATRIAL FIBRILLATION [None]
  - BRAIN NATRIURETIC PEPTIDE INCREASED [None]
  - CARDIAC FAILURE CONGESTIVE [None]
  - CARDIOMYOPATHY [None]
  - COMPLICATIONS OF TRANSPLANTED KIDNEY [None]
  - CONDITION AGGRAVATED [None]
  - INFLUENZA LIKE ILLNESS [None]
  - MYOCARDITIS [None]
  - PNEUMONIA [None]
  - RENAL FAILURE [None]
  - RENAL TUBULAR NECROSIS [None]
  - SINUS BRADYCARDIA [None]
  - VENTRICULAR TACHYCARDIA [None]
